FAERS Safety Report 14764787 (Version 2)
Quarter: 2018Q2

REPORT INFORMATION
  Report Type: Spontaneous
  Country: US (occurrence: US)
  Receive Date: 20180416
  Receipt Date: 20180417
  Transmission Date: 20180711
  Serious: No
  Sender: FDA-Public Use
  Company Number: US-PFIZER INC-2018153066

PATIENT
  Age: 35 Year
  Sex: Female

DRUGS (3)
  1. METHOTREXATE SODIUM. [Suspect]
     Active Substance: METHOTREXATE SODIUM
     Dosage: UNK (TREATMENT LENGTH: MORE THAN 1 YEAR)
  2. HUMIRA [Suspect]
     Active Substance: ADALIMUMAB
     Dosage: UNK
  3. METHOTREXATE. [Suspect]
     Active Substance: METHOTREXATE
     Dosage: UNK
     Route: 048

REACTIONS (1)
  - Drug ineffective [Unknown]
